FAERS Safety Report 6622112-4 (Version None)
Quarter: 2010Q1

REPORT INFORMATION
  Report Type: 
  Country: None (occurrence: None)
  Receive Date: 20100303
  Receipt Date: 20100224
  Transmission Date: 20100710
  Serious: Yes (Death, Hospitalization)
  Sender: FDA-Public Use
  Company Number: 2008SP007728

PATIENT
  Age: 76 Year
  Sex: Male
  Weight: 61 kg

DRUGS (15)
  1. TEMODAL [Suspect]
     Indication: GLIOBLASTOMA MULTIFORME
     Dosage: SEE IMAGE
     Route: 048
     Dates: start: 20061011, end: 20061015
  2. TEMODAL [Suspect]
     Indication: GLIOBLASTOMA MULTIFORME
     Dosage: SEE IMAGE
     Route: 048
     Dates: start: 20061115, end: 20061119
  3. TEMODAL [Suspect]
     Indication: GLIOBLASTOMA MULTIFORME
     Dosage: SEE IMAGE
     Route: 048
     Dates: start: 20070110, end: 20070114
  4. TEMODAL [Suspect]
     Indication: GLIOBLASTOMA MULTIFORME
     Dosage: SEE IMAGE
     Route: 048
     Dates: start: 20070207, end: 20070211
  5. TEMODAL [Suspect]
     Indication: GLIOBLASTOMA MULTIFORME
     Dosage: SEE IMAGE
     Route: 048
     Dates: start: 20070307, end: 20070311
  6. TEMODAL [Suspect]
     Indication: GLIOBLASTOMA MULTIFORME
     Dosage: SEE IMAGE
     Route: 048
     Dates: start: 20070404, end: 20070408
  7. MAGNESIUM OXIDE [Concomitant]
  8. KYTRIL [Concomitant]
  9. ISOBIDE [Concomitant]
  10. GLYCEOL [Concomitant]
  11. LAXOBERON [Concomitant]
  12. SEPAMIT-R [Concomitant]
  13. INDOMETHACIN [Concomitant]
  14. AZUNOL [Concomitant]
  15. LAMISIL [Concomitant]

REACTIONS (4)
  - ASPIRATION [None]
  - DEPRESSED LEVEL OF CONSCIOUSNESS [None]
  - DISEASE PROGRESSION [None]
  - PNEUMONIA [None]
